FAERS Safety Report 10366097 (Version 1)
Quarter: 2014Q1

REPORT INFORMATION
  Report Type: Spontaneous
  Country: US (occurrence: None)
  Receive Date: 20140306
  Receipt Date: 20140306
  Transmission Date: 20141002
  Serious: Yes (Hospitalization)
  Sender: FDA-Public Use
  Company Number: 163-21880-13030843

PATIENT
  Age: 70 Year
  Sex: Female

DRUGS (3)
  1. REVLIMID [Suspect]
     Indication: PLASMA CELL MYELOMA
     Dosage: 2.5 MG, 14 IN 21 D, PO
     Route: 048
     Dates: start: 20121004
  2. VELCADE (BORTEZOMIB) [Concomitant]
  3. DEXAMETHASONE [Concomitant]

REACTIONS (1)
  - Deep vein thrombosis [None]
